FAERS Safety Report 9838575 (Version 1)
Quarter: 2014Q1

REPORT INFORMATION
  Report Type: Spontaneous
  Country: NO (occurrence: NO)
  Receive Date: 20140123
  Receipt Date: 20140123
  Transmission Date: 20141002
  Serious: Yes (Death, Hospitalization)
  Sender: FDA-Public Use
  Company Number: NO-BRISTOL-MYERS SQUIBB COMPANY-20047858

PATIENT
  Age: 56 Year
  Sex: Female

DRUGS (3)
  1. ABILIFY [Suspect]
     Indication: SCHIZOPHRENIA
     Dates: start: 20130429, end: 20130512
  2. HALDOL [Suspect]
     Indication: SCHIZOPHRENIA
     Dates: start: 20130512, end: 20130512
  3. DIAZEPAM [Concomitant]

REACTIONS (3)
  - Arrhythmia [Fatal]
  - Abnormal behaviour [Unknown]
  - Insomnia [Unknown]
